FAERS Safety Report 12924298 (Version 1)
Quarter: 2016Q4

REPORT INFORMATION
  Report Type: Spontaneous
  Country: US (occurrence: US)
  Receive Date: 20161108
  Receipt Date: 20161108
  Transmission Date: 20170207
  Serious: No
  Sender: FDA-Public Use
  Company Number: US-ELI_LILLY_AND_COMPANY-US201611002437

PATIENT
  Age: 61 Year
  Sex: Female

DRUGS (3)
  1. HUMULIN R [Suspect]
     Active Substance: INSULIN HUMAN
     Dosage: UNK, BID
     Route: 065
  2. LANTUS [Concomitant]
     Active Substance: INSULIN GLARGINE
  3. HUMULIN R [Suspect]
     Active Substance: INSULIN HUMAN
     Indication: TYPE 2 DIABETES MELLITUS
     Dosage: UNK, BID
     Route: 065

REACTIONS (2)
  - Compression fracture [Unknown]
  - Fall [Unknown]

NARRATIVE: CASE EVENT DATE: 201610
